FAERS Safety Report 5137060-9 (Version None)
Quarter: 2006Q4

REPORT INFORMATION
  Report Type: 
  Country: None (occurrence: None)
  Receive Date: 20061030
  Receipt Date: 20061003
  Transmission Date: 20070319
  Serious: Yes (Life-Threatening)
  Sender: FDA-Public Use
  Company Number: FR-BAYER-200610926BFR

PATIENT
  Age: 79 Year
  Sex: Male

DRUGS (4)
  1. CIFLOX [Suspect]
     Indication: BRONCHITIS
     Dosage: TOTAL DAILY DOSE: 1000 MG  UNIT DOSE: 500 MG
     Route: 048
     Dates: start: 20060904, end: 20060907
  2. AUGMENTIN '125' [Interacting]
     Indication: BRONCHITIS
     Dosage: TOTAL DAILY DOSE: 2 G
     Route: 048
     Dates: start: 20060904, end: 20060907
  3. PREVISCAN [Interacting]
     Indication: ATRIAL FIBRILLATION
     Dosage: TOTAL DAILY DOSE: 20 MG  UNIT DOSE: 20 MG
     Route: 048
     Dates: end: 20060907
  4. PREVISCAN [Interacting]
     Route: 048
     Dates: start: 20060915

REACTIONS (4)
  - CONFUSIONAL STATE [None]
  - DISORIENTATION [None]
  - PROTHROMBIN LEVEL DECREASED [None]
  - SUBDURAL HAEMATOMA [None]
